FAERS Safety Report 9417304 (Version 2)
Quarter: 2013Q4

REPORT INFORMATION
  Report Type: Spontaneous
  Country: US (occurrence: US)
  Receive Date: 20130724
  Receipt Date: 20131022
  Transmission Date: 20140711
  Serious: No
  Sender: FDA-Public Use
  Company Number: US-BRISTOL-MYERS SQUIBB COMPANY-18920074

PATIENT
  Age: 79 Year
  Sex: Female

DRUGS (2)
  1. ELIQUIS [Suspect]
     Indication: ATRIAL FIBRILLATION
  2. LISINOPRIL [Concomitant]

REACTIONS (1)
  - Psychomotor hyperactivity [Unknown]
